FAERS Safety Report 17387901 (Version 1)
Quarter: 2020Q1

REPORT INFORMATION
  Report Type: Spontaneous
  Country: US (occurrence: US)
  Receive Date: 20200123
  Receipt Date: 20200123
  Transmission Date: 20200409
  Serious: Yes (Hospitalization)
  Sender: FDA-Public Use
  Company Number: None

PATIENT
  Age: 69 Year
  Sex: Female
  Weight: 45.8 kg

DRUGS (1)
  1. DOXIL [Suspect]
     Active Substance: DOXORUBICIN HYDROCHLORIDE
     Dates: end: 20191216

REACTIONS (5)
  - Intestinal obstruction [None]
  - Adhesion [None]
  - Abdominal pain [None]
  - Haemorrhage [None]
  - Colostomy [None]

NARRATIVE: CASE EVENT DATE: 20191227
